FAERS Safety Report 13308966 (Version 1)
Quarter: 2017Q1

REPORT INFORMATION
  Report Type: Spontaneous
  Country: US (occurrence: US)
  Receive Date: 20170308
  Receipt Date: 20170308
  Transmission Date: 20170428
  Serious: No
  Sender: FDA-Public Use
  Company Number: None

PATIENT
  Age: 74 Year
  Sex: Female
  Weight: 63.9 kg

DRUGS (13)
  1. ACETAM [Concomitant]
  2. ALAMAX CR 1 [Concomitant]
  3. METHYL CPG [Concomitant]
  4. RED YEAST RICE [Concomitant]
     Active Substance: DIETARY SUPPLEMENT
  5. VITAMIN D [Concomitant]
     Active Substance: CHOLECALCIFEROL
  6. TOPIRAMATE. [Suspect]
     Active Substance: TOPIRAMATE
     Indication: MIGRAINE
     Dosage: ?          QUANTITY:1 TABLET(S);?
     Route: 048
     Dates: start: 20170114, end: 20170211
  7. BRUTAL [Concomitant]
  8. ULTRA FLORA SPECTRUM [Concomitant]
  9. MAGNESIUM [Concomitant]
     Active Substance: MAGNESIUM
  10. CITRACAL [Concomitant]
     Active Substance: CALCIUM CITRATE
  11. CAF [Concomitant]
  12. CODEINE [Concomitant]
     Active Substance: CODEINE
  13. FISH OIL [Concomitant]
     Active Substance: FISH OIL

REACTIONS (3)
  - Nausea [None]
  - Dysgeusia [None]
  - Weight decreased [None]

NARRATIVE: CASE EVENT DATE: 20170207
